FAERS Safety Report 9445478 (Version 3)
Quarter: 2013Q4

REPORT INFORMATION
  Report Type: Report from Study
  Country: JP (occurrence: JP)
  Receive Date: 20130807
  Receipt Date: 20131218
  Transmission Date: 20140711
  Serious: Yes (Life-Threatening)
  Sender: FDA-Public Use
  Company Number: JP-PFIZER INC-2013226702

PATIENT
  Age: 72 Year
  Sex: Female
  Weight: 42 kg

DRUGS (9)
  1. ADRIACIN [Suspect]
     Indication: ADULT T-CELL LYMPHOMA/LEUKAEMIA
     Dosage: UNK
     Route: 042
     Dates: start: 20130212, end: 20130212
  2. KW-0761 [Suspect]
     Indication: ADULT T-CELL LYMPHOMA/LEUKAEMIA
     Dosage: 1 MG/KG, WEEKLY
     Route: 041
     Dates: start: 20121114, end: 20130102
  3. CYCLOPHOSPHAMIDE [Suspect]
     Indication: ADULT T-CELL LYMPHOMA/LEUKAEMIA
     Dosage: UNK
     Route: 042
     Dates: start: 20130212, end: 20130212
  4. ONCOVIN [Suspect]
     Indication: ADULT T-CELL LYMPHOMA/LEUKAEMIA
     Dosage: UNK
     Route: 042
     Dates: start: 20130212, end: 20130212
  5. PREDNISOLONE [Suspect]
     Indication: ADULT T-CELL LYMPHOMA/LEUKAEMIA
     Dosage: UNK
     Route: 065
     Dates: start: 20130212, end: 20130212
  6. ACETAMINOPHEN [Concomitant]
     Dosage: UNK
     Route: 048
     Dates: start: 20121114, end: 20130102
  7. PREDNISOLONE [Concomitant]
     Dosage: UNK
     Dates: start: 20121114, end: 20130102
  8. OLOPATADINE HYDROCHLORIDE [Concomitant]
     Dosage: UNK
     Route: 048
     Dates: start: 20121114, end: 20130102
  9. FAMOTIDINE [Concomitant]
     Dosage: UNK
     Dates: start: 20121114, end: 20130102

REACTIONS (3)
  - Stress cardiomyopathy [Not Recovered/Not Resolved]
  - Cholangitis [Recovered/Resolved]
  - Oral herpes [Recovered/Resolved]
